FAERS Safety Report 4587140-1 (Version None)
Quarter: 2005Q1

REPORT INFORMATION
  Report Type: 
  Country: None (occurrence: None)
  Receive Date: 20050215
  Receipt Date: 20050131
  Transmission Date: 20050727
  Serious: Yes (Hospitalization)
  Sender: FDA-Public Use
  Company Number: 2005-0008000

PATIENT
  Age: 52 Year
  Sex: Male
  Weight: 115.6 kg

DRUGS (2)
  1. HEPSERA [Suspect]
     Indication: HEPATITIS B VIRUS
     Dosage: 10 MG, 1 IN 1 D, ORAL
     Route: 048
     Dates: start: 20020101, end: 20050130
  2. CANNABIS (CANNABIS SATIVA) [Concomitant]

REACTIONS (4)
  - ASCITES [None]
  - DRUG ABUSER [None]
  - GALLBLADDER DISORDER [None]
  - PANCREATITIS [None]
